FAERS Safety Report 8621965-8 (Version None)
Quarter: 2012Q3

REPORT INFORMATION
  Report Type: 
  Country: None (occurrence: None)
  Receive Date: 20120823
  Receipt Date: 20120823
  Transmission Date: 20120928
  Serious: Yes (Hospitalization)
  Sender: FDA-Public Use
  Company Number: None

PATIENT
  Sex: Male
  Weight: 103 kg

DRUGS (6)
  1. ALPRAZOLAM [Concomitant]
  2. PANTOPRAZOLE [Concomitant]
  3. BLEOMYCIN SULFATE [Suspect]
     Dosage: 21 IU
  4. HYCODAN [Concomitant]
  5. MORPHINE [Concomitant]
  6. ACYCLOVIR [Concomitant]

REACTIONS (2)
  - DISORIENTATION [None]
  - DYSPNOEA [None]
